FAERS Safety Report 18297058 (Version 3)
Quarter: 2021Q1

REPORT INFORMATION
  Report Type: Report from Study
  Country: None (occurrence: US)
  Receive Date: 20200923
  Receipt Date: 20210323
  Transmission Date: 20210419
  Serious: Yes (Other)
  Sender: FDA-Public Use
  Company Number: US-ABBVIE-20K-163-3364496-00

PATIENT
  Age: 62 Year
  Sex: Male

DRUGS (3)
  1. HUMIRA [Suspect]
     Active Substance: ADALIMUMAB
     Route: 058
     Dates: start: 2020, end: 2020
  2. HUMIRA [Suspect]
     Active Substance: ADALIMUMAB
     Indication: PSORIASIS
     Dosage: CITRATE FREE
     Route: 058
     Dates: start: 20200318, end: 202008
  3. HUMIRA [Suspect]
     Active Substance: ADALIMUMAB
     Route: 058
     Dates: start: 202011

REACTIONS (10)
  - Frustration tolerance decreased [Not Recovered/Not Resolved]
  - Pain [Not Recovered/Not Resolved]
  - Cholecystectomy [Recovered/Resolved]
  - Skin irritation [Not Recovered/Not Resolved]
  - Emotional distress [Recovering/Resolving]
  - General physical condition abnormal [Recovering/Resolving]
  - Psoriasis [Recovering/Resolving]
  - Impaired quality of life [Unknown]
  - Hernia [Unknown]
  - Psoriatic arthropathy [Not Recovered/Not Resolved]

NARRATIVE: CASE EVENT DATE: 2020
